FAERS Safety Report 5431794-4 (Version None)
Quarter: 2007Q3

REPORT INFORMATION
  Report Type: 
  Country: None (occurrence: None)
  Receive Date: 20070830
  Receipt Date: 20070824
  Transmission Date: 20080115
  Serious: Yes (Other)
  Sender: FDA-Public Use
  Company Number: DK-ABBOTT-07P-044-0414912-00

PATIENT
  Sex: Male

DRUGS (1)
  1. HUMIRA [Suspect]
     Indication: CROHN'S DISEASE
     Dosage: ADMINISTERED APPROXIMATELY 8 TIMES
     Route: 058
     Dates: start: 20060101, end: 20060101

REACTIONS (1)
  - DRUG INEFFECTIVE [None]
